FAERS Safety Report 7403866-6 (Version None)
Quarter: 2011Q2

REPORT INFORMATION
  Report Type: 
  Country: None (occurrence: None)
  Receive Date: 20110408
  Receipt Date: 20110405
  Transmission Date: 20111010
  Serious: Yes (Other)
  Sender: FDA-Public Use
  Company Number: BR-ABBOTT-11P-020-0716265-00

PATIENT
  Sex: Female
  Weight: 50 kg

DRUGS (3)
  1. PREDNISONE [Concomitant]
     Indication: DIARRHOEA
     Route: 048
     Dates: start: 20110322
  2. HUMIRA [Suspect]
     Indication: CROHN'S DISEASE
     Route: 058
     Dates: end: 20110314
  3. NORIPURUM [Suspect]
     Indication: ANAEMIA
     Route: 042
     Dates: start: 20110323, end: 20110323

REACTIONS (14)
  - DIARRHOEA [None]
  - ABDOMINAL PAIN [None]
  - HYPERSENSITIVITY [None]
  - FEAR [None]
  - ANAEMIA [None]
  - CONVULSION [None]
  - DRUG DISPENSING ERROR [None]
  - WEIGHT DECREASED [None]
  - INCORRECT ROUTE OF DRUG ADMINISTRATION [None]
  - THROAT TIGHTNESS [None]
  - INSOMNIA [None]
  - FREQUENT BOWEL MOVEMENTS [None]
  - DRUG INEFFECTIVE [None]
  - RASH MACULAR [None]
